FAERS Safety Report 8282915-X (Version None)
Quarter: 2012Q2

REPORT INFORMATION
  Report Type: 
  Country: None (occurrence: None)
  Receive Date: 20120413
  Receipt Date: 20120405
  Transmission Date: 20120825
  Serious: Yes (Other)
  Sender: FDA-Public Use
  Company Number: BR-SANOFI-AVENTIS-2012SA024301

PATIENT
  Age: 69 Year
  Sex: Male
  Weight: 56 kg

DRUGS (3)
  1. METFORMIN HCL [Concomitant]
     Indication: TYPE 2 DIABETES MELLITUS
     Route: 048
     Dates: start: 20110801
  2. LANTUS [Suspect]
     Indication: TYPE 2 DIABETES MELLITUS
     Dosage: DOSE: 22 TO 26 IU DAILY
     Route: 058
     Dates: start: 20110801
  3. CLIKSTAR [Suspect]
     Indication: DEVICE THERAPY
     Dates: start: 20110801

REACTIONS (3)
  - ABDOMINAL DISTENSION [None]
  - GASTROINTESTINAL CARCINOMA [None]
  - CONSTIPATION [None]
